FAERS Safety Report 7720520-1 (Version None)
Quarter: 2011Q3

REPORT INFORMATION
  Report Type: 
  Country: None (occurrence: None)
  Receive Date: 20110831
  Receipt Date: 20110831
  Transmission Date: 20111222
  Serious: Yes (Hospitalization)
  Sender: FDA-Public Use
  Company Number: None

PATIENT
  Age: 26 Year
  Sex: Female
  Weight: 61.234 kg

DRUGS (2)
  1. LEVORA 0.15/30-21 [Concomitant]
  2. TERBINAFINE HCL [Suspect]
     Indication: ONYCHOMYCOSIS
     Dosage: 250 MG
     Route: 048

REACTIONS (5)
  - LIP SWELLING [None]
  - ACNE [None]
  - SYNCOPE [None]
  - ABDOMINAL PAIN UPPER [None]
  - RASH [None]
